FAERS Safety Report 26093622 (Version 2)
Quarter: 2025Q4

REPORT INFORMATION
  Report Type: Spontaneous
  Country: US (occurrence: US)
  Receive Date: 20251126
  Receipt Date: 20251217
  Transmission Date: 20260117
  Serious: Yes (Other)
  Sender: AMGEN
  Company Number: US-AMGEN INC.-USASP2025230010

PATIENT
  Sex: Male

DRUGS (6)
  1. OTEZLA [Suspect]
     Active Substance: APREMILAST
     Indication: Hepatitis C
     Dosage: 30 MILLIGRAM, BID
     Route: 048
  2. OTEZLA [Suspect]
     Active Substance: APREMILAST
     Indication: Off label use
  3. ESTRADIOL [Concomitant]
     Active Substance: ESTRADIOL
     Dosage: MICRONIZED
  4. GABAPENTIN [Concomitant]
     Active Substance: GABAPENTIN
  5. OLANZAPINE [Concomitant]
     Active Substance: OLANZAPINE
  6. OZEMPIC [Concomitant]
     Active Substance: SEMAGLUTIDE

REACTIONS (7)
  - Type 2 diabetes mellitus [Unknown]
  - Giant cell tumour of tendon sheath [Unknown]
  - Pain [Unknown]
  - Cardiac disorder [Unknown]
  - Off label use [Unknown]
  - Diarrhoea [Unknown]
  - Abdominal pain upper [Unknown]
